FAERS Safety Report 9033724 (Version 1)
Quarter: 2013Q1

REPORT INFORMATION
  Report Type: Spontaneous
  Country: US (occurrence: US)
  Receive Date: 20130128
  Receipt Date: 20130128
  Transmission Date: 20140127
  Serious: Yes (Other)
  Sender: FDA-Public Use
  Company Number: US-AMGEN-USASP2012076430

PATIENT
  Age: 50 Year
  Sex: Male

DRUGS (6)
  1. ENBREL [Suspect]
     Indication: RHEUMATOID ARTHRITIS
     Dosage: 50 MG, QWK
     Route: 058
     Dates: start: 201201
  2. PREDNISONE [Concomitant]
     Dosage: 10 MG, PRN
  3. ECOTRIN [Concomitant]
     Dosage: 81 MG, QD
  4. QUINAPRIL [Concomitant]
     Dosage: 10 MG, PRN
  5. B-COMPLEX                          /06817001/ [Concomitant]
     Dosage: UNK UNK, QD
  6. LYRICA [Concomitant]
     Dosage: 100 MG, UNK

REACTIONS (3)
  - Rectal haemorrhage [Not Recovered/Not Resolved]
  - Epistaxis [Not Recovered/Not Resolved]
  - Tinea infection [Not Recovered/Not Resolved]
